FAERS Safety Report 16676276 (Version 5)
Quarter: 2020Q4

REPORT INFORMATION
  Report Type: Spontaneous
  Country: US (occurrence: US)
  Receive Date: 20190807
  Receipt Date: 20201112
  Transmission Date: 20210113
  Serious: Yes (Other)
  Sender: FDA-Public Use
  Company Number: US-GILEAD-2019-0421740

PATIENT
  Age: 40 Year
  Sex: Male
  Weight: 126.98 kg

DRUGS (31)
  1. TRUVADA [Suspect]
     Active Substance: EMTRICITABINE\TENOFOVIR DISOPROXIL FUMARATE
     Indication: HIV INFECTION
     Dosage: UNK
     Route: 048
     Dates: start: 200905, end: 201204
  2. FENOFIBRATE. [Concomitant]
     Active Substance: FENOFIBRATE
  3. BYDUREON [Concomitant]
     Active Substance: EXENATIDE
  4. MUCINEX [Concomitant]
     Active Substance: GUAIFENESIN
  5. REYATAZ [Concomitant]
     Active Substance: ATAZANAVIR SULFATE
  6. TRIUMEQ [Concomitant]
     Active Substance: ABACAVIR SULFATE\DOLUTEGRAVIR SODIUM\LAMIVUDINE
  7. VITAMINS NOS [Concomitant]
     Active Substance: VITAMINS
  8. ACETAMINOPHEN. [Concomitant]
     Active Substance: ACETAMINOPHEN
  9. ASPIRIN 81 [Concomitant]
     Active Substance: ASPIRIN
  10. FLOMAX [Concomitant]
     Active Substance: TAMSULOSIN HYDROCHLORIDE
  11. AMLODIPINE [Concomitant]
     Active Substance: AMLODIPINE BESYLATE
  12. NOVIR [ENTECAVIR] [Concomitant]
  13. EPZICOM [Concomitant]
     Active Substance: ABACAVIR SULFATE\LAMIVUDINE
  14. TIVICAY [Concomitant]
     Active Substance: DOLUTEGRAVIR SODIUM
  15. LISINOPRIL. [Concomitant]
     Active Substance: LISINOPRIL
  16. LOSARTAN. [Concomitant]
     Active Substance: LOSARTAN
  17. VALSARTAN. [Concomitant]
     Active Substance: VALSARTAN
  18. NORVIR [Concomitant]
     Active Substance: RITONAVIR
     Indication: HIV INFECTION
  19. FARXIGA [Concomitant]
     Active Substance: DAPAGLIFLOZIN PROPANEDIOL
  20. AMOXICILLIN. [Concomitant]
     Active Substance: AMOXICILLIN
  21. ZOLOFT [Concomitant]
     Active Substance: SERTRALINE HYDROCHLORIDE
  22. GEMFIBROZIL. [Concomitant]
     Active Substance: GEMFIBROZIL
  23. ATORVASTATIN [Concomitant]
     Active Substance: ATORVASTATIN
  24. CORTISONE [Concomitant]
     Active Substance: CORTISONE
  25. PREDNISONE. [Concomitant]
     Active Substance: PREDNISONE
  26. ABREVA [Concomitant]
     Active Substance: DOCOSANOL
  27. HUMULIN 70/30 [Concomitant]
     Active Substance: INSULIN HUMAN
  28. LEVOFLOXACIN. [Concomitant]
     Active Substance: LEVOFLOXACIN
  29. INVOKANA [Concomitant]
     Active Substance: CANAGLIFLOZIN
  30. EDURANT [Concomitant]
     Active Substance: RILPIVIRINE HYDROCHLORIDE
  31. NOVOLIN 70/30 [Concomitant]
     Active Substance: INSULIN HUMAN

REACTIONS (9)
  - Tooth fracture [Unknown]
  - Chronic kidney disease [Not Recovered/Not Resolved]
  - Economic problem [Unknown]
  - Bone density decreased [Not Recovered/Not Resolved]
  - Osteopenia [Not Recovered/Not Resolved]
  - Pain [Unknown]
  - Emotional distress [Unknown]
  - Anhedonia [Unknown]
  - Anxiety [Unknown]

NARRATIVE: CASE EVENT DATE: 2011
